FAERS Safety Report 18636988 (Version 1)
Quarter: 2020Q4

REPORT INFORMATION
  Report Type: Spontaneous
  Country: US (occurrence: US)
  Receive Date: 20201219
  Receipt Date: 20201219
  Transmission Date: 20210114
  Serious: No
  Sender: FDA-Public Use
  Company Number: US-AUROBINDO-AUR-APL-2020-007340

PATIENT
  Age: 76 Year
  Sex: Male
  Weight: 81.6 kg

DRUGS (1)
  1. SERTRALINE HYDROCHLORIDE ORAL CONCENTRATE 20 MG/ML [Suspect]
     Active Substance: SERTRALINE HYDROCHLORIDE
     Indication: ANXIETY
     Dosage: 2.5 MILLILITER, TWO TIMES A DAY
     Route: 048
     Dates: start: 20200202

REACTIONS (2)
  - Product taste abnormal [Unknown]
  - Dysgeusia [Recovered/Resolved]

NARRATIVE: CASE EVENT DATE: 20200202
